FAERS Safety Report 9416693 (Version 2)
Quarter: 2013Q3

REPORT INFORMATION
  Report Type: Spontaneous
  Country: JP (occurrence: JP)
  Receive Date: 20130724
  Receipt Date: 20130920
  Transmission Date: 20140515
  Serious: Yes (Other)
  Sender: FDA-Public Use
  Company Number: JP-AMGEN-JPNSP2013051125

PATIENT
  Age: 79 Year
  Sex: Female

DRUGS (2)
  1. RANMARK [Suspect]
     Indication: METASTASES TO LIVER
     Dosage: UNKNOWN
     Route: 065
     Dates: start: 201212
  2. RANMARK [Suspect]
     Indication: METASTASES TO BONE

REACTIONS (1)
  - Osteonecrosis of jaw [Unknown]
